FAERS Safety Report 17164590 (Version 1)
Quarter: 2019Q4

REPORT INFORMATION
  Report Type: Spontaneous
  Country: US (occurrence: US)
  Receive Date: 20191217
  Receipt Date: 20191217
  Transmission Date: 20200122
  Serious: No
  Sender: FDA-Public Use
  Company Number: US-PERRIGO-19US012071

PATIENT
  Age: 78 Year
  Sex: Female
  Weight: 56.69 kg

DRUGS (1)
  1. GUAIFENESIN-DEXTROMETHORPHAN HYDROBROMIDE [Suspect]
     Active Substance: DEXTROMETHORPHAN HYDROBROMIDE\GUAIFENESIN
     Indication: RESPIRATORY TRACT CONGESTION
     Dosage: 1 TABLET, EVERY 9-12 HOURS
     Route: 051
     Dates: start: 201908

REACTIONS (3)
  - Inappropriate schedule of product administration [Unknown]
  - Incorrect product administration duration [Unknown]
  - Wrong technique in product usage process [Unknown]

NARRATIVE: CASE EVENT DATE: 201908
